FAERS Safety Report 8243972-X (Version None)
Quarter: 2012Q1

REPORT INFORMATION
  Report Type: 
  Country: None (occurrence: None)
  Receive Date: 20120329
  Receipt Date: 20111101
  Transmission Date: 20120608
  Serious: No
  Sender: FDA-Public Use
  Company Number: US-MYLANLABS-2011S1022766

PATIENT

DRUGS (1)
  1. ESTRADIOL [Suspect]
     Dosage: CHANGED QW

REACTIONS (1)
  - HYPERSENSITIVITY [None]
